FAERS Safety Report 19618155 (Version 1)
Quarter: 2021Q3

REPORT INFORMATION
  Report Type: Spontaneous
  Country: US (occurrence: US)
  Receive Date: 20210727
  Receipt Date: 20210727
  Transmission Date: 20211014
  Serious: No
  Sender: FDA-Public Use
  Company Number: US-ROCHE-2709090

PATIENT
  Age: 39 Year
  Sex: Female

DRUGS (3)
  1. XELODA [Suspect]
     Active Substance: CAPECITABINE
     Route: 048
     Dates: start: 202007
  2. XELODA [Suspect]
     Active Substance: CAPECITABINE
     Route: 048
     Dates: start: 202011
  3. XELODA [Suspect]
     Active Substance: CAPECITABINE
     Indication: BREAST CANCER
     Route: 048
     Dates: start: 202007

REACTIONS (8)
  - Nausea [Unknown]
  - Vomiting [Unknown]
  - Ill-defined disorder [Unknown]
  - Fall [Unknown]
  - Dizziness [Unknown]
  - Fatigue [Unknown]
  - Flatulence [Unknown]
  - Lymphoedema [Unknown]

NARRATIVE: CASE EVENT DATE: 20201020
